FAERS Safety Report 5964459-0 (Version None)
Quarter: 2008Q4

REPORT INFORMATION
  Report Type: 
  Country: None (occurrence: None)
  Receive Date: 20081125
  Receipt Date: 20081114
  Transmission Date: 20090506
  Serious: Yes (Other)
  Sender: FDA-Public Use
  Company Number: GB-RANBAXY-2008RR-19363

PATIENT
  Age: 65 Year
  Sex: Male
  Weight: 100 kg

DRUGS (11)
  1. SIMVASTATIN [Suspect]
     Indication: CARDIOVASCULAR EVENT PROPHYLAXIS
     Dosage: 40 MG, QD
     Route: 048
     Dates: start: 20080627, end: 20081105
  2. AMOXICILLIN [Concomitant]
     Dosage: 500 MG, TID
     Dates: start: 20081024
  3. ASPIRIN [Concomitant]
     Dosage: 75 MG, QD
  4. BENDROFLUMETHIAZIDE [Concomitant]
     Dosage: 2.5 MG, QD
  5. CO-DYDRAMOL [Concomitant]
     Dosage: 1 DF, QID
  6. CORTISONE ACETATE TAB [Concomitant]
  7. ENBREL [Concomitant]
     Dosage: 25 MG, 2/WEEK
     Route: 058
  8. FOLIC ACID [Concomitant]
     Dosage: 5 MG, UNK
  9. INDOMETHACIN [Concomitant]
     Dosage: 50 MG, BID
  10. LANSOPRAZOLE [Concomitant]
     Dosage: 15 MG, QD
  11. METHOTREXATE [Concomitant]
     Dosage: 2.5 MG, UNK

REACTIONS (1)
  - TENDON RUPTURE [None]
